FAERS Safety Report 8476688-5 (Version None)
Quarter: 2012Q2

REPORT INFORMATION
  Report Type: 
  Country: None (occurrence: None)
  Receive Date: 20120628
  Receipt Date: 20120620
  Transmission Date: 20120825
  Serious: Yes (Death, Hospitalization, Other)
  Sender: FDA-Public Use
  Company Number: US-BAXTER-2011BH040685

PATIENT
  Sex: Female

DRUGS (1)
  1. DIANEAL [Suspect]
     Indication: PERITONEAL DIALYSIS
     Route: 033

REACTIONS (6)
  - DEATH [None]
  - MYOCARDIAL INFARCTION [None]
  - CONVULSION [None]
  - WOUND [None]
  - POSTOPERATIVE WOUND INFECTION [None]
  - GENERAL PHYSICAL HEALTH DETERIORATION [None]
